FAERS Safety Report 9837031 (Version 9)
Quarter: 2021Q1

REPORT INFORMATION
  Report Type: Spontaneous
  Country: US (occurrence: US)
  Receive Date: 20140123
  Receipt Date: 20210105
  Transmission Date: 20210420
  Serious: Yes (Hospitalization, Other)
  Sender: FDA-Public Use
  Company Number: US-PFIZER INC-2014018385

PATIENT
  Age: 50 Year
  Sex: Female
  Weight: 44.44 kg

DRUGS (33)
  1. LYRICA [Suspect]
     Active Substance: PREGABALIN
     Indication: INTERVERTEBRAL DISC DEGENERATION
     Dosage: 250 MG, DAILY (50 MG, 2 AT BEDTIME, THEN 1 THREE TIMES A DAY)
     Route: 048
  2. PRAVASTATIN. [Concomitant]
     Active Substance: PRAVASTATIN
     Dosage: 40 MG, 1X/DAY (AT BED TIME)
     Route: 048
     Dates: start: 2013, end: 2013
  3. TOPROL XL [Concomitant]
     Active Substance: METOPROLOL SUCCINATE
     Indication: HYPERTENSION
     Dosage: 25 MG, DAILY (WITH FOOD)
     Route: 048
  4. TRIAZOLAM. [Concomitant]
     Active Substance: TRIAZOLAM
     Indication: SCOLIOSIS
  5. TRIAZOLAM. [Concomitant]
     Active Substance: TRIAZOLAM
     Indication: SPINAL DISORDER
  6. VITAMIN E SKIN CARE [Concomitant]
     Dosage: UNK
     Route: 061
     Dates: start: 2009
  7. HYDROCORTISONE. [Concomitant]
     Active Substance: HYDROCORTISONE
     Dosage: UNK
  8. LYRICA [Suspect]
     Active Substance: PREGABALIN
     Indication: ARTHRITIS
     Dosage: 100 MG, 2X/DAY (2 CAPSULES)
     Route: 048
     Dates: start: 20170802
  9. HALCION [Concomitant]
     Active Substance: TRIAZOLAM
     Indication: SPINAL PAIN
     Dosage: 0.5 MG, 1X/DAY (AT BEDTIME)
     Route: 048
  10. HALCION [Concomitant]
     Active Substance: TRIAZOLAM
     Indication: SCOLIOSIS
     Dosage: 1.5 MG, DAILY
     Dates: start: 1985
  11. AVELOX [Concomitant]
     Active Substance: MOXIFLOXACIN HYDROCHLORIDE
     Indication: ANTIBIOTIC THERAPY
     Dosage: 400 MG, UNK
     Dates: start: 201902, end: 201902
  12. TRAMADOL HCL [Concomitant]
     Active Substance: TRAMADOL HYDROCHLORIDE
     Dosage: 100 MG, 3X/DAY
  13. LYRICA [Suspect]
     Active Substance: PREGABALIN
     Indication: PAIN
     Dosage: 100 MG, 3X/DAY
     Route: 048
     Dates: start: 2013
  14. TRIAZOLAM. [Concomitant]
     Active Substance: TRIAZOLAM
     Indication: SPINAL PAIN
     Dosage: 1.5 MG, DAILY (6 DAILY 0.25 MG)
     Dates: start: 1985
  15. LYRICA [Suspect]
     Active Substance: PREGABALIN
     Indication: ARTHRALGIA
     Dosage: 50 MG, 4X/DAY
     Route: 048
     Dates: start: 1988
  16. LYRICA [Suspect]
     Active Substance: PREGABALIN
     Indication: OSTEOARTHRITIS
     Dosage: 250 MG, DAILY (50 MG, 2 AT BEDTIME, THEN 1 THREE TIMES A DAY)
     Route: 048
     Dates: start: 1988
  17. LYRICA [Suspect]
     Active Substance: PREGABALIN
     Dosage: 100 MG, 3X/DAY (6 IN 24 HOUR)
     Route: 048
  18. BENAZEPRIL [Concomitant]
     Active Substance: BENAZEPRIL HYDROCHLORIDE
     Indication: HYPERTENSION
     Dosage: 20 MG, DAILY
     Dates: start: 1985
  19. LEVOTHYROXINE SODIUM. [Concomitant]
     Active Substance: LEVOTHYROXINE SODIUM
     Indication: HYPOTHYROIDISM
     Dosage: 50 UG, 1X/DAY [IN THE MORNING]
     Route: 048
  20. HALCION [Concomitant]
     Active Substance: TRIAZOLAM
     Indication: SCIATICA
  21. LYRICA [Suspect]
     Active Substance: PREGABALIN
     Indication: FIBROMYALGIA
     Dosage: 50 MG, 3X/DAY(2 CAPSULES)
     Dates: start: 1985
  22. LYRICA [Suspect]
     Active Substance: PREGABALIN
     Dosage: 50 MG, 3X/DAY(2 CAPSULES)
  23. ULTRAM [Concomitant]
     Active Substance: TRAMADOL HYDROCHLORIDE
     Indication: PAIN
     Dosage: 100 MG, AS NEEDED (3XDAY)
     Route: 048
     Dates: start: 2013, end: 2014
  24. FLORAJEN [Concomitant]
     Active Substance: PROBIOTICS NOS
     Dosage: UNK
     Dates: start: 2013, end: 2013
  25. TRIAZOLAM. [Concomitant]
     Active Substance: TRIAZOLAM
     Indication: MUSCLE SPASMS
     Dosage: 0.25 MG, EVERY 4 HRS
     Route: 048
     Dates: start: 1987
  26. CLOTRIMAZOLE AND BETAMETHASONE [Concomitant]
     Active Substance: BETAMETHASONE\CLOTRIMAZOLE
     Dosage: UNK, 2X/DAY
     Dates: start: 2018, end: 2019
  27. LOTENSIN [Concomitant]
     Active Substance: BENAZEPRIL HYDROCHLORIDE
     Dosage: UNK
  28. METOPROLOL SUCCINATE. [Concomitant]
     Active Substance: METOPROLOL SUCCINATE
     Indication: HYPERTENSION
     Dosage: 25 MG, 1X/DAY
     Dates: start: 2013
  29. LYRICA [Suspect]
     Active Substance: PREGABALIN
     Indication: SCOLIOSIS
     Dosage: 100 MG, 1X/DAY (AT NIGHT)
     Route: 048
     Dates: start: 1988
  30. BENAZEPRIL HCL [Concomitant]
     Active Substance: BENAZEPRIL HYDROCHLORIDE
     Indication: HYPERTENSION
     Dosage: 20 MG, 1X/DAY (EVERY MORNING)
     Route: 048
     Dates: start: 2010
  31. TRIAZOLAM. [Concomitant]
     Active Substance: TRIAZOLAM
     Indication: INTERVERTEBRAL DISC DEGENERATION
  32. LYRICA [Suspect]
     Active Substance: PREGABALIN
     Indication: SPINAL PAIN
     Dosage: 20 MG, 2X/DAY
     Route: 048
     Dates: start: 20170626, end: 201707
  33. LEVOTHROID [Concomitant]
     Active Substance: LEVOTHYROXINE SODIUM
     Dosage: UNK

REACTIONS (41)
  - Foot fracture [Unknown]
  - Diarrhoea [Not Recovered/Not Resolved]
  - Dysphonia [Unknown]
  - Hypoacusis [Unknown]
  - Nodule [Recovered/Resolved]
  - Illness [Unknown]
  - Pain [Not Recovered/Not Resolved]
  - Muscular weakness [Unknown]
  - Pruritus [Recovering/Resolving]
  - Back pain [Recovering/Resolving]
  - Pain in extremity [Not Recovered/Not Resolved]
  - Hypothyroidism [Not Recovered/Not Resolved]
  - Decreased appetite [Recovering/Resolving]
  - Night sweats [Not Recovered/Not Resolved]
  - Feeling cold [Not Recovered/Not Resolved]
  - Pain in extremity [Recovering/Resolving]
  - Tinnitus [Unknown]
  - Drug ineffective [Not Recovered/Not Resolved]
  - Hypertension [Not Recovered/Not Resolved]
  - Gastroenteritis [Not Recovered/Not Resolved]
  - Urticaria [Recovered/Resolved]
  - Rash erythematous [Recovering/Resolving]
  - Arthralgia [Unknown]
  - Cataract [Unknown]
  - Faecaloma [Unknown]
  - Carpal tunnel syndrome [Unknown]
  - Oedema peripheral [Not Recovered/Not Resolved]
  - Formication [Recovering/Resolving]
  - Withdrawal syndrome [Not Recovered/Not Resolved]
  - Chills [Recovering/Resolving]
  - Abdominal pain upper [Unknown]
  - Gait disturbance [Unknown]
  - Joint injury [Unknown]
  - Intentional product use issue [Unknown]
  - Rash pruritic [Unknown]
  - Poor quality sleep [Recovering/Resolving]
  - Oropharyngeal discomfort [Unknown]
  - Chest pain [Unknown]
  - Fall [Unknown]
  - Chondropathy [Not Recovered/Not Resolved]
  - Osteoarthritis [Unknown]

NARRATIVE: CASE EVENT DATE: 1985
